FAERS Safety Report 15848683 (Version 1)
Quarter: 2019Q1

REPORT INFORMATION
  Report Type: Report from Study
  Country: US (occurrence: US)
  Receive Date: 20190121
  Receipt Date: 20190121
  Transmission Date: 20190417
  Serious: No
  Sender: FDA-Public Use
  Company Number: US-AGIOS-1811US00322

PATIENT

DRUGS (2)
  1. TIBSOVO [Suspect]
     Active Substance: IVOSIDENIB
     Dosage: 250 UNK
     Route: 048
  2. TIBSOVO [Suspect]
     Active Substance: IVOSIDENIB
     Indication: ACUTE MYELOID LEUKAEMIA
     Dosage: 250 MILLIGRAM, 2 TABS (500MG) DAILY
     Route: 048
     Dates: start: 20180820, end: 2018

REACTIONS (2)
  - Rosacea [Unknown]
  - Arthritis [Unknown]

NARRATIVE: CASE EVENT DATE: 2018
